FAERS Safety Report 14107693 (Version 3)
Quarter: 2018Q2

REPORT INFORMATION
  Report Type: Other
  Country: IT (occurrence: IT)
  Receive Date: 20171019
  Receipt Date: 20180515
  Transmission Date: 20180711
  Serious: Yes (Life-Threatening, Hospitalization, Other)
  Sender: FDA-Public Use
  Company Number: IT-APOTEX-2017AP019874

PATIENT
  Age: 57 Year
  Sex: Female

DRUGS (5)
  1. RIVOTRIL [Suspect]
     Active Substance: CLONAZEPAM
     Indication: INTENTIONAL SELF-INJURY
     Dosage: 60 MG, TOTAL
     Route: 048
     Dates: start: 20170911, end: 20170911
  2. QUETIAPINA DOC GENERICI COMPRESSE RIVESTITE CON FILM [Suspect]
     Active Substance: QUETIAPINE
     Indication: INTENTIONAL SELF-INJURY
     Dosage: 6000 MG, TOTAL
     Route: 048
     Dates: start: 20170911, end: 20170911
  3. FLURAZEPAM [Suspect]
     Active Substance: FLURAZEPAM\FLURAZEPAM HYDROCHLORIDE
     Indication: INTENTIONAL SELF-INJURY
     Dosage: 900 MG, TOTAL
     Route: 048
     Dates: start: 20170911, end: 20170911
  4. NOZINAN                            /00038601/ [Suspect]
     Active Substance: LEVOMEPROMAZINE
     Indication: INTENTIONAL SELF-INJURY
     Dosage: 500 MG, TOTAL
     Route: 048
     Dates: start: 20170911, end: 20170911
  5. ORAMORPH [Suspect]
     Active Substance: MORPHINE SULFATE
     Indication: INTENTIONAL SELF-INJURY
     Dosage: 20 MG, TOTAL
     Route: 048
     Dates: start: 20170911, end: 20170911

REACTIONS (7)
  - Loss of consciousness [Unknown]
  - Intentional self-injury [Unknown]
  - Hypoxia [Unknown]
  - Electrocardiogram QT prolonged [Unknown]
  - Hypotension [Unknown]
  - Drug abuse [Unknown]
  - Hypokalaemia [Unknown]

NARRATIVE: CASE EVENT DATE: 20170911
